FAERS Safety Report 6985947-4 (Version None)
Quarter: 2010Q3

REPORT INFORMATION
  Report Type: 
  Country: None (occurrence: None)
  Receive Date: 20100915
  Receipt Date: 20100908
  Transmission Date: 20110219
  Serious: Yes (Life-Threatening)
  Sender: FDA-Public Use
  Company Number: FR-BAXTER-2010BH023243

PATIENT
  Age: 40 Year
  Sex: Male

DRUGS (23)
  1. CYCLOPHOSPHAMIDE [Suspect]
     Indication: PRECURSOR T-LYMPHOBLASTIC LYMPHOMA/LEUKAEMIA
     Route: 042
     Dates: start: 20100128, end: 20100128
  2. CYCLOPHOSPHAMIDE [Suspect]
     Route: 042
     Dates: start: 20100127, end: 20100127
  3. CYCLOPHOSPHAMIDE [Suspect]
     Route: 042
     Dates: start: 20100113, end: 20100113
  4. METHOTREXATE [Suspect]
     Indication: PRECURSOR T-LYMPHOBLASTIC LYMPHOMA/LEUKAEMIA
     Route: 065
     Dates: start: 20100120, end: 20100120
  5. METHOTREXATE [Suspect]
     Route: 065
     Dates: start: 20100113, end: 20100113
  6. KIDROLASE [Suspect]
     Indication: PRECURSOR T-LYMPHOBLASTIC LYMPHOMA/LEUKAEMIA
     Route: 042
     Dates: start: 20100122, end: 20100122
  7. KIDROLASE [Suspect]
     Route: 042
     Dates: start: 20100120, end: 20100120
  8. CORTANCYL [Suspect]
     Indication: PRECURSOR T-LYMPHOBLASTIC LYMPHOMA/LEUKAEMIA
     Route: 048
     Dates: start: 20100113, end: 20100120
  9. VINCRISTINE SULFATE [Suspect]
     Indication: PRECURSOR T-LYMPHOBLASTIC LYMPHOMA/LEUKAEMIA
     Route: 042
     Dates: start: 20100127, end: 20100127
  10. VINCRISTINE SULFATE [Suspect]
     Route: 042
     Dates: start: 20100120, end: 20100120
  11. VINCRISTINE SULFATE [Suspect]
     Route: 042
     Dates: start: 20100113, end: 20100113
  12. DAUNORUBICIN HCL [Suspect]
     Indication: PRECURSOR T-LYMPHOBLASTIC LYMPHOMA/LEUKAEMIA
     Route: 042
     Dates: start: 20100127, end: 20100128
  13. DAUNORUBICIN HCL [Suspect]
     Route: 042
     Dates: start: 20100113, end: 20100115
  14. CYTARABINE [Suspect]
     Indication: PRECURSOR T-LYMPHOBLASTIC LYMPHOMA/LEUKAEMIA
     Route: 065
     Dates: start: 20100120, end: 20100120
  15. CYTARABINE [Suspect]
     Route: 065
     Dates: start: 20100113, end: 20100113
  16. ONDANSETRON [Concomitant]
     Indication: PRODUCT USED FOR UNKNOWN INDICATION
     Route: 065
  17. METHYLPREDNISOLONE [Concomitant]
     Indication: PRODUCT USED FOR UNKNOWN INDICATION
     Route: 065
  18. OMEPRAZOLE [Concomitant]
     Indication: PRODUCT USED FOR UNKNOWN INDICATION
     Route: 065
  19. VALACYCLOVIR [Concomitant]
     Indication: PRODUCT USED FOR UNKNOWN INDICATION
     Route: 065
  20. ALPRAZOLAM [Concomitant]
     Indication: PRODUCT USED FOR UNKNOWN INDICATION
     Route: 065
  21. PENTAMIDINE ISETHIONATE [Concomitant]
     Indication: PRODUCT USED FOR UNKNOWN INDICATION
     Route: 065
  22. APREPITANT [Concomitant]
     Indication: PRODUCT USED FOR UNKNOWN INDICATION
     Route: 065
  23. COTRIM [Concomitant]
     Indication: PRODUCT USED FOR UNKNOWN INDICATION
     Route: 065

REACTIONS (1)
  - CEREBRAL VENOUS THROMBOSIS [None]
